FAERS Safety Report 6294557-6 (Version None)
Quarter: 2009Q3

REPORT INFORMATION
  Report Type: 
  Country: None (occurrence: None)
  Receive Date: 20090803
  Receipt Date: 20090723
  Transmission Date: 20100115
  Serious: Yes (Other)
  Sender: FDA-Public Use
  Company Number: GB-WYE-H04098508

PATIENT
  Age: 48 Year
  Sex: Male

DRUGS (3)
  1. EFFEXOR [Suspect]
     Indication: DEPRESSION
     Dosage: UNKNOWN
  2. TRAMADOL [Interacting]
     Indication: PAIN
     Dosage: UNKNOWN
  3. SUMATRIPTAN SUCCINATE [Interacting]
     Indication: PAIN
     Dosage: UNKNOWN

REACTIONS (2)
  - DRUG INTERACTION [None]
  - SEROTONIN SYNDROME [None]
